FAERS Safety Report 21926037 (Version 2)
Quarter: 2023Q1

REPORT INFORMATION
  Report Type: Report from Study
  Country: BR (occurrence: BR)
  Receive Date: 20230130
  Receipt Date: 20230215
  Transmission Date: 20230418
  Serious: Yes (Other)
  Sender: FDA-Public Use
  Company Number: BR-002147023-NVSC2023BR019219

PATIENT
  Sex: Female
  Weight: 70 kg

DRUGS (1)
  1. TRAVATAN [Suspect]
     Active Substance: TRAVOPROST
     Indication: Glaucoma
     Dosage: 1 DRP, QD (STARTED SINCE THE DIAGNOSIS OF GLAUCOMA SOME 10 YEARS AGO)
     Route: 047

REACTIONS (11)
  - Deafness [Not Recovered/Not Resolved]
  - Carotid artery disease [Not Recovered/Not Resolved]
  - Eye disorder [Unknown]
  - COVID-19 [Recovered/Resolved]
  - Hypoacusis [Not Recovered/Not Resolved]
  - Ageusia [Recovered/Resolved]
  - Hyposmia [Not Recovered/Not Resolved]
  - Hypertension [Not Recovered/Not Resolved]
  - Alopecia [Not Recovered/Not Resolved]
  - COVID-19 [Recovered/Resolved with Sequelae]
  - COVID-19 [Not Recovered/Not Resolved]

NARRATIVE: CASE EVENT DATE: 20210101
